FAERS Safety Report 5055765-5 (Version None)
Quarter: 2006Q3

REPORT INFORMATION
  Report Type: 
  Country: None (occurrence: None)
  Receive Date: 20060714
  Receipt Date: 20060706
  Transmission Date: 20061208
  Serious: No
  Sender: FDA-Public Use
  Company Number: 06H-163-0308634-00

PATIENT
  Age: 15 Year
  Sex: Male

DRUGS (7)
  1. FUROSEMIDE [Suspect]
     Indication: DRUG USE FOR UNKNOWN INDICATION
  2. TOBRAMYCIN [Suspect]
     Indication: ANTI-INFECTIVE THERAPY
     Dosage: INTRAVENOUS
     Route: 042
  3. VANCOMYCIN INJECTION                (VANCOMYCIN HYDROCHLORIDE) [Suspect]
     Indication: ANTI-INFECTIVE THERAPY
  4. TACROLIMUS                                (TACROLIMUS) [Suspect]
     Indication: DRUG USE FOR UNKNOWN INDICATION
  5. AMPHOTERICIN B [Suspect]
     Indication: DRUG USE FOR UNKNOWN INDICATION
  6. TOBRAMYCIN [Suspect]
     Indication: ANTI-INFECTIVE THERAPY
     Dosage: INHALATION
     Route: 055
  7. CEFTAZIDIME                    (CEFTAZIDIME) [Concomitant]

REACTIONS (2)
  - HAEMODIALYSIS [None]
  - RENAL FAILURE [None]
